FAERS Safety Report 11776178 (Version 3)
Quarter: 2015Q4

REPORT INFORMATION
  Report Type: Spontaneous
  Country: JP (occurrence: JP)
  Receive Date: 20151125
  Receipt Date: 20151127
  Transmission Date: 20160304
  Serious: Yes (Other)
  Sender: FDA-Public Use
  Company Number: JP-009507513-1511JPN012633

PATIENT
  Age: 69 Year
  Sex: Female

DRUGS (2)
  1. BORTEZOMIB [Suspect]
     Active Substance: BORTEZOMIB
     Indication: PLASMA CELL MYELOMA
     Dosage: 1MG/M2; DAY 1-8/ MONTH
     Route: 065
     Dates: start: 20130424
  2. DEXAMETHASONE. [Suspect]
     Active Substance: DEXAMETHASONE
     Indication: PLASMA CELL MYELOMA
     Dosage: 20 MG/BODY WEIGHT; DAY 1-4 - DAY 8-9/ MONTH
     Route: 065
     Dates: start: 20130424

REACTIONS (3)
  - Off label use [Unknown]
  - Peritonitis [Unknown]
  - Pleuroperitoneal communication [Unknown]

NARRATIVE: CASE EVENT DATE: 2013
